FAERS Safety Report 8091416-3 (Version None)
Quarter: 2012Q1

REPORT INFORMATION
  Report Type: 
  Country: None (occurrence: None)
  Receive Date: 20120129
  Receipt Date: 20111205
  Transmission Date: 20120608
  Serious: No
  Sender: FDA-Public Use
  Company Number: PR-ABBOTT-11P-131-0868136-00

PATIENT
  Sex: Female
  Weight: 72.64 kg

DRUGS (7)
  1. CORTISONE ACETATE [Concomitant]
     Route: 048
  2. CORTISONE ACETATE [Concomitant]
     Indication: PRODUCT USED FOR UNKNOWN INDICATION
     Route: 048
     Dates: start: 20091001
  3. CORTISONE ACETATE [Concomitant]
     Route: 048
  4. HUMIRA [Suspect]
     Indication: HIDRADENITIS
     Route: 058
     Dates: start: 20091001, end: 20100101
  5. IBUPROFEN (ADVIL) [Concomitant]
     Indication: PAIN
     Route: 048
  6. CORTISONE ACETATE [Concomitant]
     Route: 048
  7. CORTISONE ACETATE [Concomitant]
     Route: 048
     Dates: end: 20100101

REACTIONS (1)
  - DRUG INEFFECTIVE [None]
